FAERS Safety Report 7002526-3 (Version None)
Quarter: 2010Q3

REPORT INFORMATION
  Report Type: 
  Country: None (occurrence: None)
  Receive Date: 20100917
  Receipt Date: 20100917
  Transmission Date: 20110219
  Serious: Yes (Other)
  Sender: FDA-Public Use
  Company Number: None

PATIENT
  Sex: Female
  Weight: 84.8226 kg

DRUGS (5)
  1. VENLAFAXINE HCL EXTENDED-RELEASE [Suspect]
     Indication: ANXIETY
     Dosage: 150 MG ONCE BID PO
     Route: 048
     Dates: start: 20091201
  2. VENLAFAXINE HCL EXTENDED-RELEASE [Suspect]
     Indication: DEPRESSION
     Dosage: 150 MG ONCE BID PO
     Route: 048
     Dates: start: 20091201
  3. VENLAFAXINE HCL EXTENDED-RELEASE [Suspect]
     Indication: ANXIETY
     Dosage: 75 MG ONCE QD PO
     Route: 048
     Dates: start: 20100201
  4. VENLAFAXINE HCL EXTENDED-RELEASE [Suspect]
     Indication: DEPRESSION
     Dosage: 75 MG ONCE QD PO
     Route: 048
     Dates: start: 20100201
  5. DEPAKOTE ER [Concomitant]

REACTIONS (15)
  - APATHY [None]
  - CONSTIPATION [None]
  - DEPRESSION [None]
  - DRY MOUTH [None]
  - FATIGUE [None]
  - GASTRITIS [None]
  - HEADACHE [None]
  - IRRITABILITY [None]
  - MEMORY IMPAIRMENT [None]
  - NAUSEA [None]
  - POOR PERSONAL HYGIENE [None]
  - PRODUCT SUBSTITUTION ISSUE [None]
  - TEARFULNESS [None]
  - TREMOR [None]
  - YAWNING [None]
